FAERS Safety Report 9868822 (Version 1)
Quarter: 2014Q1

REPORT INFORMATION
  Report Type: Report from Study
  Country: US (occurrence: US)
  Receive Date: 20140204
  Receipt Date: 20140204
  Transmission Date: 20141002
  Serious: Yes (Other)
  Sender: FDA-Public Use
  Company Number: US-ABBVIE-14P-163-1194105-00

PATIENT
  Age: 47 Year
  Sex: Female

DRUGS (10)
  1. HUMIRA [Suspect]
     Indication: CROHN^S DISEASE
     Dosage: LOADING DOSE
     Route: 058
     Dates: start: 20131017, end: 20131017
  2. HUMIRA [Suspect]
     Dosage: SECOND DOSE
     Dates: start: 20131031, end: 20131031
  3. HUMIRA [Suspect]
  4. PROZAC [Concomitant]
     Indication: BIPOLAR DISORDER
  5. CLARITIN [Concomitant]
     Indication: PRODUCT USED FOR UNKNOWN INDICATION
  6. IMODIUM [Concomitant]
     Indication: PRODUCT USED FOR UNKNOWN INDICATION
  7. TOPAMAX [Concomitant]
     Indication: PRODUCT USED FOR UNKNOWN INDICATION
  8. XANAX [Concomitant]
     Indication: PRODUCT USED FOR UNKNOWN INDICATION
  9. VICODIN ES [Concomitant]
     Indication: PRODUCT USED FOR UNKNOWN INDICATION
  10. ALBUTEROL [Concomitant]
     Indication: PRODUCT USED FOR UNKNOWN INDICATION

REACTIONS (31)
  - Asthenia [Recovered/Resolved]
  - Fatigue [Recovered/Resolved]
  - Unevaluable event [Recovered/Resolved]
  - Dehydration [Recovered/Resolved]
  - Crohn^s disease [Unknown]
  - Blood potassium decreased [Recovered/Resolved]
  - Abdominal pain [Recovered/Resolved]
  - Pyrexia [Recovered/Resolved]
  - Headache [Recovered/Resolved]
  - Productive cough [Unknown]
  - Blood albumin decreased [Recovered/Resolved]
  - Chest pain [Recovered/Resolved]
  - Vomiting [Recovered/Resolved]
  - Diarrhoea [Unknown]
  - Haematochezia [Unknown]
  - Chills [Unknown]
  - Dyspnoea [Recovered/Resolved]
  - Anal abscess [Unknown]
  - Anal fistula [Unknown]
  - Hyperhidrosis [Recovered/Resolved]
  - Appetite disorder [Unknown]
  - Oropharyngeal pain [Unknown]
  - Local swelling [Unknown]
  - Snoring [Unknown]
  - Cough [Unknown]
  - Photophobia [Unknown]
  - Respiratory tract congestion [Unknown]
  - Weight decreased [Not Recovered/Not Resolved]
  - Injection site papule [Unknown]
  - Injection site reaction [Unknown]
  - Injection site erythema [Unknown]
